FAERS Safety Report 5962535-X (Version None)
Quarter: 2008Q4

REPORT INFORMATION
  Report Type: 
  Country: None (occurrence: None)
  Receive Date: 20081121
  Receipt Date: 20081111
  Transmission Date: 20090506
  Serious: Yes (Death, Life-Threatening)
  Sender: FDA-Public Use
  Company Number: US-PFIZER INC-2008095470

PATIENT
  Sex: Male

DRUGS (1)
  1. REVATIO [Suspect]
     Dates: start: 20081106

REACTIONS (1)
  - DEATH [None]
